FAERS Safety Report 12999004 (Version 1)
Quarter: 2016Q4

REPORT INFORMATION
  Report Type: Spontaneous
  Country: GB (occurrence: GB)
  Receive Date: 20161205
  Receipt Date: 20161205
  Transmission Date: 20170207
  Serious: Yes (Other)
  Sender: FDA-Public Use
  Company Number: GB-GLAXOSMITHKLINE-GB2016GSK177062

PATIENT
  Sex: Female

DRUGS (2)
  1. NICOTINELL [Suspect]
     Active Substance: NICOTINE
     Indication: SMOKING CESSATION THERAPY
     Dosage: UNK,2 STRIPS OF LOZENGES A DAY
     Route: 048
     Dates: start: 2010
  2. LANTUS SOLOSTAR [Concomitant]
     Active Substance: INSULIN GLARGINE
     Indication: DIABETES MELLITUS
     Dosage: UNK

REACTIONS (8)
  - Balance disorder [Unknown]
  - Tooth disorder [Unknown]
  - Asthenia [Unknown]
  - Abdominal pain [Unknown]
  - Intentional product use issue [Unknown]
  - Auditory disorder [Unknown]
  - Cerebrovascular accident [Recovered/Resolved]
  - Dyspnoea [Unknown]
